FAERS Safety Report 14673543 (Version 2)
Quarter: 2018Q2

REPORT INFORMATION
  Report Type: Spontaneous
  Country: JP (occurrence: JP)
  Receive Date: 20180323
  Receipt Date: 20180405
  Transmission Date: 20180711
  Serious: Yes (Death, Other)
  Sender: FDA-Public Use
  Company Number: JP-AMGEN-JPNSP2018040547

PATIENT
  Age: 51 Year
  Sex: Male
  Weight: 70 kg

DRUGS (2)
  1. VECTIBIX [Suspect]
     Active Substance: PANITUMUMAB
     Indication: COLON CANCER STAGE IV
     Dosage: 400 MG, Q2WK
     Route: 041
     Dates: start: 2017
  2. VECTIBIX [Suspect]
     Active Substance: PANITUMUMAB
     Dosage: 390 MG, Q2WK
     Route: 041
     Dates: end: 201801

REACTIONS (2)
  - Colon cancer [Fatal]
  - Disease progression [Fatal]
